FAERS Safety Report 4473601-2 (Version None)
Quarter: 2004Q4

REPORT INFORMATION
  Report Type: 
  Country: None (occurrence: None)
  Receive Date: 20040909
  Receipt Date: 20040628
  Transmission Date: 20050328
  Serious: Yes (Hospitalization)
  Sender: FDA-Public Use
  Company Number: F03200400075

PATIENT
  Age: 66 Year
  Sex: Female

DRUGS (4)
  1. ELOXATIN [Suspect]
     Indication: COLORECTAL CANCER METASTATIC
     Dosage: 85 MG/M2 Q2W - INTRAVENOUS NOS
     Route: 042
     Dates: start: 20040513, end: 20040513
  2. CETUXIMAB - SOLUTION - 250 MG/M2 [Suspect]
     Indication: COLORECTAL CANCER METASTATIC
     Dosage: 250 MG/M2 1/WEEK - INTRAVENOUS NOS
     Route: 042
     Dates: start: 20040513, end: 20040513
  3. LEUCOVORIN CALCIUM [Suspect]
     Indication: COLORECTAL CANCER METASTATIC
     Dosage: 200 MG/M2 Q2W - INTRAVENOUS NOS
     Route: 042
     Dates: start: 20040513, end: 20040514
  4. FLUOROURACIL [Suspect]
     Indication: COLORECTAL CANCER METASTATIC
     Dosage: 600 MG/M2 Q2W - INTRAVENOUS NOS
     Route: 042
     Dates: start: 20040513, end: 20040515

REACTIONS (1)
  - ILEUS [None]
